FAERS Safety Report 4290967-7 (Version None)
Quarter: 2004Q1

REPORT INFORMATION
  Report Type: 
  Country: None (occurrence: None)
  Receive Date: 20040209
  Receipt Date: 20040122
  Transmission Date: 20041129
  Serious: Yes (Other)
  Sender: FDA-Public Use
  Company Number: PHNR2004AU00495

PATIENT
  Age: 82 Year
  Sex: Female
  Weight: 74.027 kg

DRUGS (6)
  1. VISUDYNE [Suspect]
     Indication: MACULAR DEGENERATION
     Dosage: 15 MG DAILY IV
     Route: 042
     Dates: start: 20040121, end: 20040121
  2. VERECAPS SLOW RELEASE [Concomitant]
  3. AVAPRO [Concomitant]
  4. HIANANE [Concomitant]
  5. ZOCOR [Concomitant]
  6. TICLID [Concomitant]

REACTIONS (2)
  - ANGINA PECTORIS [None]
  - PAIN IN EXTREMITY [None]
